FAERS Safety Report 4932951-3 (Version None)
Quarter: 2006Q1

REPORT INFORMATION
  Report Type: 
  Country: None (occurrence: None)
  Receive Date: 20060306
  Receipt Date: 20051012
  Transmission Date: 20060701
  Serious: Yes (Hospitalization, Other)
  Sender: FDA-Public Use
  Company Number: BE-BRISTOL-MYERS SQUIBB COMPANY-13153515

PATIENT
  Age: 61 Year
  Sex: Male

DRUGS (5)
  1. CETUXIMAB [Suspect]
     Indication: COLORECTAL CANCER METASTATIC
     Dosage: MOST RECENT INFUSION OF CETUXIMAB (22-SEPT-2005)-2ND INFUSION. D/C'D ON 12-OCT-05.
     Route: 041
     Dates: start: 20050914, end: 20050922
  2. IRINOTECAN HCL [Suspect]
     Indication: COLORECTAL CANCER METASTATIC
     Dosage: FIRST AND MOST RECENT INFUSION. DISCONTINUED ON 19-OCT-05.
     Route: 042
     Dates: start: 20050914, end: 20050914
  3. FOLINIC ACID [Suspect]
     Indication: COLORECTAL CANCER METASTATIC
     Dosage: FIRST AND MOST RECENT INFUSION. DISCONTINUED ON 19-OCT-05.
     Route: 042
     Dates: start: 20050914, end: 20050914
  4. FLUOROURACIL [Suspect]
     Indication: COLORECTAL CANCER METASTATIC
     Dosage: FIRST AND MOST RECENT INFUSION. DISCONTINUED ON 19-OCT-05.
     Route: 042
     Dates: start: 20050914, end: 20050914
  5. ZOMETA [Concomitant]
     Dosage: FIRST INJECTION AUG-2005. SECOND AND LAST INJECTION WAS ADMINISTERED 12-SEPT-2005.
     Dates: start: 20050912, end: 20050912

REACTIONS (3)
  - ELECTROLYTE IMBALANCE [None]
  - HYPOKALAEMIA [None]
  - HYPOMAGNESAEMIA [None]
